FAERS Safety Report 7288162-2 (Version None)
Quarter: 2011Q1

REPORT INFORMATION
  Report Type: 
  Country: None (occurrence: None)
  Receive Date: 20110211
  Receipt Date: 20110113
  Transmission Date: 20110831
  Serious: Yes (Death, Hospitalization)
  Sender: FDA-Public Use
  Company Number: US-ROCHE-678006

PATIENT

DRUGS (3)
  1. BAY 43-9006 [Suspect]
     Dosage: FREQ: BID ON DAYS 1-5,8-12,15-19 AND 22-26
     Route: 048
     Dates: start: 20090910
  2. BEVACIZUMAB [Suspect]
     Dosage: FREQ: 30-90 MIN ON DAYS 1 AND 15
     Route: 042
     Dates: start: 20090910
  3. SUTENT [Suspect]
     Route: 065

REACTIONS (15)
  - HYPONATRAEMIA [None]
  - ALANINE AMINOTRANSFERASE INCREASED [None]
  - DYSPNOEA [None]
  - LEFT VENTRICULAR DYSFUNCTION [None]
  - HYPERGLYCAEMIA [None]
  - BLOOD SODIUM DECREASED [None]
  - HAEMOGLOBIN DECREASED [None]
  - COUGH [None]
  - JAUNDICE [None]
  - BRAIN NATRIURETIC PEPTIDE INCREASED [None]
  - HYPOCALCAEMIA [None]
  - ASPARTATE AMINOTRANSFERASE INCREASED [None]
  - DEHYDRATION [None]
  - DISEASE PROGRESSION [None]
  - CARDIOMEGALY [None]
